FAERS Safety Report 24270888 (Version 2)
Quarter: 2024Q3

REPORT INFORMATION
  Report Type: Spontaneous
  Country: US (occurrence: US)
  Receive Date: 20240831
  Receipt Date: 20240926
  Transmission Date: 20241017
  Serious: Yes (Hospitalization, Other)
  Sender: MACLEODS
  Company Number: US-MACLEODS PHARMA-MAC2024049046

PATIENT

DRUGS (7)
  1. DONEPEZIL [Suspect]
     Active Substance: DONEPEZIL\DONEPEZIL HYDROCHLORIDE
     Indication: Cerebral atrophy
     Route: 065
     Dates: start: 202304, end: 202305
  2. DONEPEZIL [Suspect]
     Active Substance: DONEPEZIL\DONEPEZIL HYDROCHLORIDE
     Indication: Cognitive disorder
     Dosage: INCREASED FROM 5 MG TO 10 MG DAILY
     Route: 065
     Dates: start: 202305, end: 2023
  3. OLANZAPINE [Suspect]
     Active Substance: OLANZAPINE
     Indication: Schizoaffective disorder bipolar type
     Dosage: 15 MG TWO TIMES A DAY
     Route: 065
     Dates: start: 2022
  4. OXCARBAZEPINE [Suspect]
     Active Substance: OXCARBAZEPINE
     Indication: Schizoaffective disorder bipolar type
     Dosage: 150 MG TWO TIMES A DAY
     Route: 065
     Dates: start: 2022
  5. CLOZAPINE [Suspect]
     Active Substance: CLOZAPINE
     Indication: Cognitive disorder
     Dosage: AT NIGHT
     Route: 065
     Dates: start: 202304, end: 2023
  6. DIVALPROEX SODIUM [Suspect]
     Active Substance: DIVALPROEX SODIUM
     Indication: Schizoaffective disorder bipolar type
     Dosage: UP TO 250 MG TWO TIMES A DAY
     Route: 065
     Dates: start: 2022
  7. HALOPERIDOL [Concomitant]
     Active Substance: HALOPERIDOL
     Dosage: 7.5 MG 2 TIMES A DAY
     Route: 065
     Dates: start: 202304, end: 2023

REACTIONS (13)
  - Delirium [Recovered/Resolved]
  - Cholinergic syndrome [Recovered/Resolved]
  - Altered state of consciousness [Recovered/Resolved]
  - Fall [Recovered/Resolved]
  - Salivary hypersecretion [Recovered/Resolved]
  - Drooling [Recovered/Resolved]
  - Gastrointestinal pain [Recovered/Resolved]
  - Muscle contractions involuntary [Recovered/Resolved]
  - Miosis [Recovered/Resolved]
  - Toxicity to various agents [Unknown]
  - Urinary incontinence [Recovered/Resolved]
  - Diarrhoea [Recovered/Resolved]
  - Sedation complication [Unknown]

NARRATIVE: CASE EVENT DATE: 20220101
